FAERS Safety Report 9800104 (Version 3)
Quarter: 2015Q3

REPORT INFORMATION
  Report Type: Spontaneous
  Country: US (occurrence: US)
  Receive Date: 20140106
  Receipt Date: 20150806
  Transmission Date: 20151125
  Serious: Yes (Other)
  Sender: FDA-Public Use
  Company Number: US-GILEAD-2010-0032532

PATIENT
  Age: 57 Year
  Sex: Female
  Weight: 104.33 kg

DRUGS (21)
  1. ACIPHEX [Concomitant]
     Active Substance: RABEPRAZOLE SODIUM
  2. MAGNESIUM OXIDE. [Concomitant]
     Active Substance: MAGNESIUM OXIDE
  3. ADVAIR HFA [Concomitant]
     Active Substance: FLUTICASONE PROPIONATE\SALMETEROL XINAFOATE
  4. LORAZEPAM. [Concomitant]
     Active Substance: LORAZEPAM
  5. LEVOTHYROXINE. [Concomitant]
     Active Substance: LEVOTHYROXINE
  6. PROVIGIL [Concomitant]
     Active Substance: MODAFINIL
  7. POTASSIUM CHLORIDE. [Concomitant]
     Active Substance: POTASSIUM CHLORIDE
  8. FUROSEMIDE. [Concomitant]
     Active Substance: FUROSEMIDE
  9. CYMBALTA [Concomitant]
     Active Substance: DULOXETINE HYDROCHLORIDE
  10. ALBUTEROL. [Concomitant]
     Active Substance: ALBUTEROL
  11. OXYGEN. [Concomitant]
     Active Substance: OXYGEN
  12. CYCLOBENZAPRIN [Concomitant]
  13. ERY-TAB [Concomitant]
     Active Substance: ERYTHROMYCIN
  14. SPIRONOLACTONE. [Concomitant]
     Active Substance: SPIRONOLACTONE
  15. DIOVAN [Concomitant]
     Active Substance: VALSARTAN
  16. RESTASIS [Concomitant]
     Active Substance: CYCLOSPORINE
  17. PRAMIPEXOLE. [Concomitant]
     Active Substance: PRAMIPEXOLE
  18. LETAIRIS [Suspect]
     Active Substance: AMBRISENTAN
     Indication: PULMONARY ARTERIAL HYPERTENSION
     Route: 048
     Dates: start: 20100909
  19. FLUTICASONE [Concomitant]
     Active Substance: FLUTICASONE\FLUTICASONE PROPIONATE
  20. NASONEX [Concomitant]
     Active Substance: MOMETASONE FUROATE
  21. HYOMAX [Concomitant]
     Active Substance: HYOSCYAMINE SULFATE

REACTIONS (5)
  - Nasopharyngitis [Unknown]
  - Productive cough [Unknown]
  - Fluid retention [Unknown]
  - Right ventricular failure [Unknown]
  - Dyspnoea [Unknown]

NARRATIVE: CASE EVENT DATE: 201009
